FAERS Safety Report 21745723 (Version 6)
Quarter: 2023Q2

REPORT INFORMATION
  Report Type: Spontaneous
  Country: PR (occurrence: PR)
  Receive Date: 20221219
  Receipt Date: 20230503
  Transmission Date: 20230721
  Serious: Yes (Other)
  Sender: FDA-Public Use
  Company Number: PR-JNJFOC-20221232133

PATIENT
  Age: 79 Year
  Sex: Male

DRUGS (4)
  1. ERLEADA [Suspect]
     Active Substance: APALUTAMIDE
     Indication: Prostate cancer
     Route: 048
  2. KLONOPIN [Concomitant]
     Active Substance: CLONAZEPAM
     Indication: Drug therapy
     Route: 065
  3. CYMBALTA [Concomitant]
     Active Substance: DULOXETINE HYDROCHLORIDE
     Indication: Drug therapy
     Route: 065
  4. LORAZEPAM [Concomitant]
     Active Substance: LORAZEPAM
     Indication: Drug therapy
     Route: 065

REACTIONS (25)
  - Neuropathy peripheral [Recovering/Resolving]
  - Cataract [Unknown]
  - Influenza [Recovered/Resolved]
  - Irritability [Recovered/Resolved]
  - Testicular pain [Recovering/Resolving]
  - Headache [Not Recovered/Not Resolved]
  - Pruritus genital [Recovered/Resolved]
  - Adverse event [Recovered/Resolved]
  - Dental care [Unknown]
  - Feeling hot [Recovering/Resolving]
  - Alopecia [Recovered/Resolved]
  - Phlebitis [Unknown]
  - Off label use [Unknown]
  - Product dose omission issue [Unknown]
  - Infection [Unknown]
  - Pain [Recovered/Resolved]
  - Urine odour abnormal [Unknown]
  - Mouth injury [Unknown]
  - Injury [Unknown]
  - Head injury [Unknown]
  - Hypertension [Recovering/Resolving]
  - Fall [Unknown]
  - Arthralgia [Recovering/Resolving]
  - Blood glucose increased [Unknown]
  - Dental implantation [Unknown]

NARRATIVE: CASE EVENT DATE: 20221201
